FAERS Safety Report 7544780-5 (Version None)
Quarter: 2011Q2

REPORT INFORMATION
  Report Type: 
  Country: None (occurrence: None)
  Receive Date: 20110614
  Receipt Date: 20110428
  Transmission Date: 20111010
  Serious: Yes (Hospitalization, Other)
  Sender: FDA-Public Use
  Company Number: US-BAYER-2011-004018

PATIENT
  Age: 30 Year
  Sex: Female
  Weight: 141 kg

DRUGS (5)
  1. YAZ [Suspect]
     Indication: PREMENSTRUAL SYNDROME
     Dosage: UNK
     Dates: start: 20080101, end: 20090101
  2. YASMIN [Suspect]
     Indication: PREMENSTRUAL SYNDROME
  3. ALBUTEROL INHALER [Concomitant]
  4. YASMIN [Suspect]
     Indication: CONTRACEPTION
     Dosage: UNK UNK, QD
     Route: 048
     Dates: start: 20040101, end: 20080101
  5. YAZ [Suspect]
     Indication: CONTRACEPTION

REACTIONS (5)
  - GALLBLADDER DISORDER [None]
  - GALLBLADDER INJURY [None]
  - INJURY [None]
  - PAIN [None]
  - CHOLECYSTITIS [None]
